FAERS Safety Report 4484437-0 (Version None)
Quarter: 2004Q4

REPORT INFORMATION
  Report Type: 
  Country: None (occurrence: None)
  Receive Date: 20041021
  Receipt Date: 20041006
  Transmission Date: 20050328
  Serious: Yes (Death)
  Sender: FDA-Public Use
  Company Number: 2004AL000555

PATIENT
  Age: 17 Year

DRUGS (2)
  1. PROMETHAZINE HCL [Suspect]
  2. MEPERIDINE [Suspect]
     Dosage: IV
     Route: 042

REACTIONS (1)
  - ADVERSE DRUG REACTION [None]
